FAERS Safety Report 14979294 (Version 1)
Quarter: 2018Q2

REPORT INFORMATION
  Report Type: Spontaneous
  Country: JP (occurrence: JP)
  Receive Date: 20180606
  Receipt Date: 20180606
  Transmission Date: 20180711
  Serious: Yes (Life-Threatening, Hospitalization, Other)
  Sender: FDA-Public Use
  Company Number: JP-IPSEN BIOPHARMACEUTICALS, INC.-2018-07974

PATIENT
  Age: 66 Year
  Sex: Male

DRUGS (13)
  1. CAPECITABINE. [Suspect]
     Active Substance: CAPECITABINE
     Indication: MALIGNANT NEOPLASM PROGRESSION
  2. GIMERACIL [Suspect]
     Active Substance: GIMERACIL
     Indication: RECTAL CANCER METASTATIC
     Dosage: EVENING DAY 1 TO MORNING DAY 15, EVERY THREE WEEKS
  3. OTERACIL [Suspect]
     Active Substance: OTERACIL
     Indication: MALIGNANT NEOPLASM PROGRESSION
  4. CAPECITABINE. [Suspect]
     Active Substance: CAPECITABINE
     Indication: RECTAL CANCER METASTATIC
     Dosage: EVENING DAY 1 TO MORNING DAY 15, EVERY THREE WEEKS
  5. OXALIPLATIN. [Suspect]
     Active Substance: OXALIPLATIN
     Indication: MALIGNANT NEOPLASM PROGRESSION
  6. BEVACIZUMAB. [Suspect]
     Active Substance: BEVACIZUMAB
     Indication: MALIGNANT NEOPLASM PROGRESSION
  7. GIMERACIL [Suspect]
     Active Substance: GIMERACIL
     Indication: MALIGNANT NEOPLASM PROGRESSION
  8. IRINOTECAN LIPOSOME [Suspect]
     Active Substance: IRINOTECAN
     Indication: RECTAL CANCER METASTATIC
     Dosage: EVENING DAY 1 TO MORNING DAY 15, EVERY THREE WEEKS
     Route: 065
  9. OTERACIL [Suspect]
     Active Substance: OTERACIL
     Indication: RECTAL CANCER METASTATIC
     Dosage: EVENING DAY 1 TO MORNING DAY 15, EVERY THREE WEEKS
  10. IRINOTECAN LIPOSOME [Suspect]
     Active Substance: IRINOTECAN
     Indication: MALIGNANT NEOPLASM PROGRESSION
  11. BEVACIZUMAB. [Suspect]
     Active Substance: BEVACIZUMAB
     Indication: RECTAL CANCER METASTATIC
     Dosage: EVENING DAY 1 TO MORNING DAY 15, EVERY THREE WEEKS
  12. IRINOTECAN LIPOSOME [Suspect]
     Active Substance: IRINOTECAN
     Indication: OFF LABEL USE
  13. OXALIPLATIN. [Suspect]
     Active Substance: OXALIPLATIN
     Indication: RECTAL CANCER METASTATIC
     Dosage: EVENING DAY 1 TO MORNING DAY 15, EVERY THREE WEEKS

REACTIONS (3)
  - Necrotising fasciitis [Recovering/Resolving]
  - Overdose [Unknown]
  - Off label use [Unknown]
